FAERS Safety Report 4369086-7 (Version None)
Quarter: 2004Q2

REPORT INFORMATION
  Report Type: 
  Country: None (occurrence: None)
  Receive Date: 20040527
  Receipt Date: 20040512
  Transmission Date: 20050107
  Serious: Yes (Hospitalization)
  Sender: FDA-Public Use
  Company Number: 176140

PATIENT
  Age: 54 Year
  Sex: Male

DRUGS (8)
  1. AVONEX [Suspect]
     Indication: MULTIPLE SCLEROSIS
     Dosage: 30 MCG QW IM
     Route: 030
     Dates: start: 19960101
  2. OXYCODONE [Concomitant]
  3. NEURONTIN [Concomitant]
  4. HYDROCHLOROTHIAZIDE [Concomitant]
  5. POTASSIUM [Concomitant]
  6. ZOLOFT [Concomitant]
  7. OXYBUTYNIN [Concomitant]
  8. FIORICET [Concomitant]

REACTIONS (13)
  - BLOOD UREA DECREASED [None]
  - BOWEL SOUNDS ABNORMAL [None]
  - CARDIAC FAILURE CONGESTIVE [None]
  - CHOLECYSTITIS INFECTIVE [None]
  - CHOLELITHIASIS [None]
  - GALLBLADDER NECROSIS [None]
  - NEUTROPHIL COUNT INCREASED [None]
  - OEDEMA [None]
  - PLEURAL EFFUSION [None]
  - POST PROCEDURAL COMPLICATION [None]
  - PULMONARY OEDEMA [None]
  - THERAPY NON-RESPONDER [None]
  - WHITE BLOOD CELL COUNT INCREASED [None]
